FAERS Safety Report 5949024-3 (Version None)
Quarter: 2008Q4

REPORT INFORMATION
  Report Type: 
  Country: None (occurrence: None)
  Receive Date: 20081111
  Receipt Date: 20081030
  Transmission Date: 20090506
  Serious: Yes (Other)
  Sender: FDA-Public Use
  Company Number: FR-PFIZER INC-2008079470

PATIENT
  Sex: Female
  Weight: 63 kg

DRUGS (4)
  1. INSPRA [Suspect]
     Indication: CARDIOMYOPATHY
     Dates: start: 20080916
  2. BURINEX [Concomitant]
     Indication: CARDIOMYOPATHY
  3. CARVEDILOL [Concomitant]
     Route: 048
     Dates: start: 20070801
  4. COVERSYL [Concomitant]
     Route: 048
     Dates: start: 20070801

REACTIONS (3)
  - CHEST DISCOMFORT [None]
  - TACHYCARDIA [None]
  - VERTIGO [None]
